FAERS Safety Report 9467640 (Version 1)
Quarter: 2013Q3

REPORT INFORMATION
  Report Type: Report from Study
  Country: US (occurrence: US)
  Receive Date: 20130821
  Receipt Date: 20130821
  Transmission Date: 20140515
  Serious: Yes (Death)
  Sender: FDA-Public Use
  Company Number: US-GENZYME-CLOF-1002752

PATIENT
  Age: 64 Year
  Sex: Male
  Weight: 136 kg

DRUGS (1)
  1. CLOLAR [Suspect]
     Indication: ACUTE MYELOID LEUKAEMIA
     Dosage: 30 MG/M2, QD (COURSE 1) (INDUCTION)
     Route: 065
     Dates: start: 20130726, end: 20130731

REACTIONS (3)
  - Pulmonary embolism [Fatal]
  - Respiratory arrest [Fatal]
  - Cardiac arrest [Fatal]
